FAERS Safety Report 5950823-2 (Version None)
Quarter: 2008Q4

REPORT INFORMATION
  Report Type: 
  Country: None (occurrence: None)
  Receive Date: 20081112
  Receipt Date: 20081103
  Transmission Date: 20090506
  Serious: Yes (Hospitalization)
  Sender: FDA-Public Use
  Company Number: ES-KINGPHARMUSA00001-K200801264

PATIENT
  Age: 24 Year
  Sex: Female

DRUGS (1)
  1. SONATA [Suspect]
     Indication: SLEEP DISORDER
     Dosage: UNK, 28 TABLETS AT ONCE
     Route: 048

REACTIONS (18)
  - CHROMATURIA [None]
  - CONFUSIONAL STATE [None]
  - DRUG ABUSE [None]
  - DRUG DIVERSION [None]
  - GASTROINTESTINAL TRACT MUCOSAL DISCOLOURATION [None]
  - HALLUCINATION, VISUAL [None]
  - HYPOTENSION [None]
  - LEUKOCYTOSIS [None]
  - MENTAL STATUS CHANGES [None]
  - MYOCLONUS [None]
  - ORAL MUCOSAL DISCOLOURATION [None]
  - OVERDOSE [None]
  - OXYGEN SATURATION DECREASED [None]
  - PALLOR [None]
  - RESTLESSNESS [None]
  - SINUS TACHYCARDIA [None]
  - SOMNOLENCE [None]
  - VOMITING [None]
